FAERS Safety Report 12278033 (Version 1)
Quarter: 2016Q2

REPORT INFORMATION
  Report Type: Spontaneous
  Country: US (occurrence: US)
  Receive Date: 20160418
  Receipt Date: 20160418
  Transmission Date: 20160815
  Serious: Yes (Other)
  Sender: FDA-Public Use
  Company Number: US-MDT-ADR-2016-00007

PATIENT
  Age: 39 Year
  Sex: Male

DRUGS (2)
  1. LIORESAL [Suspect]
     Active Substance: BACLOFEN
     Route: 037
  2. BACLOFEN. [Concomitant]
     Active Substance: BACLOFEN

REACTIONS (5)
  - Rash [Recovering/Resolving]
  - Cellulitis [Recovering/Resolving]
  - Muscle spasticity [Unknown]
  - Medical device site swelling [Recovering/Resolving]
  - Implant site extravasation [Recovering/Resolving]
